FAERS Safety Report 18090001 (Version 2)
Quarter: 2020Q3

REPORT INFORMATION
  Report Type: Spontaneous
  Country: FR (occurrence: FR)
  Receive Date: 20200730
  Receipt Date: 20200902
  Transmission Date: 20201103
  Serious: Yes (Hospitalization)
  Sender: FDA-Public Use
  Company Number: FR-MERZ PHARMACEUTICALS GMBH-20-02553

PATIENT
  Age: 72 Year
  Sex: Male
  Weight: 80 kg

DRUGS (8)
  1. LANSOPRAZOLE. [Concomitant]
     Active Substance: LANSOPRAZOLE
     Dosage: 15 MG
  2. CITALOPRAM [Concomitant]
     Active Substance: CITALOPRAM HYDROBROMIDE
     Dosage: 20 MG
  3. LOXEN [Concomitant]
     Dosage: 100 MG
  4. FINASTERIDE. [Concomitant]
     Active Substance: FINASTERIDE
     Dosage: 5 MG
  5. LYRICA [Concomitant]
     Active Substance: PREGABALIN
     Dosage: 200 MICROGRAM
  6. XATRAL LP [Concomitant]
     Active Substance: ALFUZOSIN
     Dosage: 10 MG
  7. XEOMIN [Suspect]
     Active Substance: INCOBOTULINUMTOXINA
     Indication: ISCHAEMIC STROKE
     Dates: start: 20200716, end: 20200716
  8. KARDEGIC [Concomitant]
     Active Substance: ASPIRIN DL-LYSINE
     Dosage: 160 MG

REACTIONS (1)
  - Seizure [Recovered/Resolved]

NARRATIVE: CASE EVENT DATE: 20200716
